FAERS Safety Report 4743854-1 (Version None)
Quarter: 2005Q3

REPORT INFORMATION
  Report Type: 
  Country: None (occurrence: None)
  Receive Date: 20050812
  Receipt Date: 20050406
  Transmission Date: 20060218
  Serious: Yes (Hospitalization, Other)
  Sender: FDA-Public Use
  Company Number: US-MERCK-0504USA01045

PATIENT
  Age: 77 Year
  Sex: Male
  Weight: 76 kg

DRUGS (6)
  1. VIOXX [Suspect]
     Indication: ARTHRITIS
     Route: 048
     Dates: start: 20020713, end: 20040508
  2. LIPITOR [Concomitant]
     Indication: BLOOD CHOLESTEROL ABNORMAL
     Route: 065
     Dates: start: 20020108
  3. ASPIRIN [Concomitant]
     Route: 065
     Dates: end: 20050105
  4. PLAVIX [Concomitant]
     Route: 065
  5. AGGRENOX [Concomitant]
     Indication: ARTHRITIS
     Route: 065
  6. PRAVACHOL [Concomitant]
     Indication: ULCER
     Route: 065

REACTIONS (15)
  - ABDOMINAL PAIN UPPER [None]
  - ATHEROSCLEROSIS [None]
  - CARDIAC DISORDER [None]
  - CEREBROVASCULAR ACCIDENT [None]
  - DENTAL DISCOMFORT [None]
  - DIZZINESS [None]
  - DYSPHAGIA [None]
  - EYE DISORDER [None]
  - GASTRIC DISORDER [None]
  - MUSCULOSKELETAL DISORDER [None]
  - OESOPHAGEAL DISORDER [None]
  - RENAL DISORDER [None]
  - SKIN CANCER [None]
  - THROMBOSIS [None]
  - TOOTHACHE [None]
